FAERS Safety Report 7604503-8 (Version None)
Quarter: 2011Q3

REPORT INFORMATION
  Report Type: 
  Country: None (occurrence: None)
  Receive Date: 20110712
  Receipt Date: 20110701
  Transmission Date: 20111222
  Serious: Yes (Hospitalization)
  Sender: FDA-Public Use
  Company Number: US-JNJFOC-20110507151

PATIENT
  Sex: Female
  Weight: 92 kg

DRUGS (2)
  1. GOLIMUMAB [Suspect]
     Indication: RHEUMATOID ARTHRITIS
     Route: 058
     Dates: start: 20110421
  2. GOLIMUMAB [Suspect]
     Route: 058

REACTIONS (2)
  - UROSEPSIS [None]
  - DEHYDRATION [None]
